FAERS Safety Report 10058603 (Version 1)
Quarter: 2014Q2

REPORT INFORMATION
  Report Type: Spontaneous
  Country: GB (occurrence: None)
  Receive Date: 20140402
  Receipt Date: 20140402
  Transmission Date: 20141212
  Serious: Yes (Life-Threatening, Other)
  Sender: FDA-Public Use
  Company Number: 226680

PATIENT
  Age: 81 Year
  Sex: Male

DRUGS (1)
  1. DAIVONEX CREAM (CALCIPOTRIOL) (CREAM) [Suspect]
     Indication: PRODUCT USED FOR UNKNOWN INDICATION
     Route: 061

REACTIONS (1)
  - Dyspnoea [None]
